FAERS Safety Report 6967431-7 (Version None)
Quarter: 2010Q3

REPORT INFORMATION
  Report Type: 
  Country: None (occurrence: None)
  Receive Date: 20100907
  Receipt Date: 20100830
  Transmission Date: 20110219
  Serious: Yes (Disabling, Other)
  Sender: FDA-Public Use
  Company Number: US-ELI_LILLY_AND_COMPANY-US201008008883

PATIENT
  Sex: Male

DRUGS (4)
  1. HUMULIN N [Suspect]
     Indication: DIABETES MELLITUS
  2. HUMULIN N [Suspect]
  3. HUMALOG [Suspect]
     Indication: DIABETES MELLITUS
     Dosage: 10 U, AS NEEDED
  4. PLAVIX [Concomitant]

REACTIONS (2)
  - DISABILITY [None]
  - VISUAL ACUITY REDUCED [None]
